FAERS Safety Report 7578219-0 (Version None)
Quarter: 2011Q2

REPORT INFORMATION
  Report Type: 
  Country: None (occurrence: None)
  Receive Date: 20110628
  Receipt Date: 20110617
  Transmission Date: 20111010
  Serious: Yes (Hospitalization)
  Sender: FDA-Public Use
  Company Number: B0724971A

PATIENT
  Age: 32 Year
  Sex: Female

DRUGS (5)
  1. BERODUAL [Concomitant]
     Route: 065
  2. STAMARIL [Suspect]
     Indication: PROPHYLAXIS
     Route: 065
  3. MALARONE [Suspect]
     Route: 065
  4. TWINRIX [Suspect]
     Indication: PROPHYLAXIS
     Route: 065
  5. AUGMENTIN '125' [Suspect]
     Route: 065

REACTIONS (20)
  - BRONCHITIS [None]
  - ASTHENIA [None]
  - SYNCOPE [None]
  - HEPATOSPLENOMEGALY [None]
  - NAUSEA [None]
  - ABDOMINAL PAIN [None]
  - FATIGUE [None]
  - BODY TEMPERATURE INCREASED [None]
  - JAUNDICE [None]
  - SPLENOMEGALY [None]
  - FAECES DISCOLOURED [None]
  - CHOLESTASIS [None]
  - BRAIN OEDEMA [None]
  - BLOOD BILIRUBIN INCREASED [None]
  - VOMITING [None]
  - MALARIA [None]
  - MALAISE [None]
  - DIZZINESS [None]
  - PAIN [None]
  - DYSURIA [None]
